FAERS Safety Report 17859045 (Version 2)
Quarter: 2020Q2

REPORT INFORMATION
  Report Type: Spontaneous
  Country: JP (occurrence: JP)
  Receive Date: 20200604
  Receipt Date: 20200610
  Transmission Date: 20200714
  Serious: Yes (Other)
  Sender: FDA-Public Use
  Company Number: JP-SA-2020SA140650

PATIENT

DRUGS (3)
  1. CISPLATIN. [Suspect]
     Active Substance: CISPLATIN
     Indication: OESOPHAGEAL CARCINOMA
     Route: 065
  2. FLUOROURACIL. [Suspect]
     Active Substance: FLUOROURACIL
     Indication: OESOPHAGEAL CARCINOMA
     Route: 065
  3. DOCETAXEL. [Suspect]
     Active Substance: DOCETAXEL
     Indication: OESOPHAGEAL CARCINOMA
     Route: 041

REACTIONS (9)
  - Abdominal distension [Recovered/Resolved]
  - Portal venous gas [Recovered/Resolved]
  - Vomiting [Recovered/Resolved]
  - Gastric ulcer haemorrhage [Recovered/Resolved]
  - Computerised tomogram abdomen abnormal [Recovered/Resolved]
  - Abdominal pain [Recovered/Resolved]
  - Blood lactic acid increased [Recovered/Resolved]
  - Pneumatosis intestinalis [Recovered/Resolved]
  - Abdominal tenderness [Recovered/Resolved]
